FAERS Safety Report 7485273-3 (Version None)
Quarter: 2011Q2

REPORT INFORMATION
  Report Type: 
  Country: None (occurrence: None)
  Receive Date: 20110517
  Receipt Date: 20100503
  Transmission Date: 20111010
  Serious: No
  Sender: FDA-Public Use
  Company Number: US-NOVEN-ALL1-2010-02594

PATIENT

DRUGS (2)
  1. DAYTRANA [Suspect]
     Dosage: UNK MG, HALF OF A 10 MG PATCH 1X/DAY:QD
     Route: 062
     Dates: start: 20091201
  2. DAYTRANA [Suspect]
     Dosage: UNK MG, ONE 10 MG PATCH AND ONE HALF OF A CUT 10 MG PATCH 1X/DAY:QD
     Route: 062
     Dates: start: 20100401

REACTIONS (4)
  - WRONG TECHNIQUE IN DRUG USAGE PROCESS [None]
  - CRYING [None]
  - AFFECT LABILITY [None]
  - HYPOPHAGIA [None]
